FAERS Safety Report 9506200 (Version 2)
Quarter: 2013Q4

REPORT INFORMATION
  Report Type: Spontaneous
  Country: US (occurrence: None)
  Receive Date: 20130301
  Receipt Date: 20131216
  Transmission Date: 20140711
  Serious: Yes (Other)
  Sender: FDA-Public Use
  Company Number: RB-45988-2012

PATIENT
  Sex: Female

DRUGS (1)
  1. SUBOXONE [Suspect]
     Indication: DRUG DEPENDENCE
     Dosage: (24 MG SUBLINGUAL)

REACTIONS (7)
  - Hyperhidrosis [None]
  - Diarrhoea [None]
  - Irritability [None]
  - Depressed mood [None]
  - Listless [None]
  - Insomnia [None]
  - Tremor [None]
